FAERS Safety Report 15432757 (Version 1)
Quarter: 2018Q3

REPORT INFORMATION
  Report Type: Spontaneous
  Country: NO (occurrence: NO)
  Receive Date: 20180927
  Receipt Date: 20180927
  Transmission Date: 20181010
  Serious: Yes (Hospitalization)
  Sender: FDA-Public Use
  Company Number: NO-ROCHE-2190466

PATIENT
  Age: 40 Year
  Sex: Male

DRUGS (1)
  1. RITUXIMAB. [Suspect]
     Active Substance: RITUXIMAB
     Indication: MULTIPLE SCLEROSIS
     Route: 041
     Dates: start: 2017

REACTIONS (8)
  - Multiple sclerosis relapse [Recovering/Resolving]
  - Diplopia [Not Recovered/Not Resolved]
  - Mental status changes [Unknown]
  - Gait disturbance [Unknown]
  - Hemiparesis [Not Recovered/Not Resolved]
  - Irritability [Unknown]
  - Product use in unapproved indication [Unknown]
  - Nystagmus [Unknown]

NARRATIVE: CASE EVENT DATE: 2017
